FAERS Safety Report 6130605-1 (Version None)
Quarter: 2009Q1

REPORT INFORMATION
  Report Type: 
  Country: None (occurrence: None)
  Receive Date: 20090325
  Receipt Date: 20090319
  Transmission Date: 20090719
  Serious: Yes (Other)
  Sender: FDA-Public Use
  Company Number: PHEH2009US02784

PATIENT
  Sex: Female

DRUGS (8)
  1. ZOMETA [Suspect]
     Indication: BREAST CANCER METASTATIC
     Dosage: 4 MG, QMO
     Route: 042
     Dates: start: 20020101, end: 20060101
  2. PROCARDIA [Concomitant]
  3. LIPITOR [Concomitant]
  4. PAXIL [Concomitant]
  5. FEMARA [Concomitant]
  6. NEURONTIN [Concomitant]
  7. ZIAC [Concomitant]
  8. CHEMOTHERAPEUTICS NOS [Concomitant]
     Indication: BREAST CANCER

REACTIONS (5)
  - BONE DISORDER [None]
  - OEDEMA [None]
  - OSTEONECROSIS [None]
  - PAIN [None]
  - PURULENT DISCHARGE [None]
